FAERS Safety Report 16059704 (Version 2)
Quarter: 2019Q1

REPORT INFORMATION
  Report Type: Report from Study
  Country: US (occurrence: US)
  Receive Date: 20190311
  Receipt Date: 20190320
  Transmission Date: 20190418
  Serious: No
  Sender: FDA-Public Use
  Company Number: US-ALLERGAN-1909572US

PATIENT
  Sex: Male

DRUGS (3)
  1. BOTULINUM TOXIN TYPE A - GENERAL (9060X) [Suspect]
     Active Substance: BOTULINUM TOXIN TYPE A
     Indication: POST PROCEDURAL STROKE
     Dosage: UNK UNK, SINGLE
     Dates: start: 2017
  2. BLOOD THINNERS [Concomitant]
     Active Substance: UNSPECIFIED INGREDIENT
     Indication: CEREBROVASCULAR ACCIDENT
  3. SEIZURES [Concomitant]
     Indication: CEREBROVASCULAR ACCIDENT

REACTIONS (1)
  - No adverse event [Unknown]
